FAERS Safety Report 9667330 (Version 1)
Quarter: 2013Q4

REPORT INFORMATION
  Report Type: Spontaneous
  Country: JP (occurrence: JP)
  Receive Date: 20131104
  Receipt Date: 20131104
  Transmission Date: 20140711
  Serious: Yes (Life-Threatening)
  Sender: FDA-Public Use
  Company Number: JP-ASTRAZENECA-2013SE80173

PATIENT
  Age: 64 Year
  Sex: Female
  Weight: 46 kg

DRUGS (2)
  1. CARBOCAIN [Suspect]
     Indication: NEUROMUSCULAR BLOCKADE
     Dosage: RIGHT SCALENE MUSCLE BLOCK: 50 MG BRACHIAL PLEXUS AXILLARY BLOCK: 50 MG
     Route: 053
  2. ANAPEINE [Suspect]
     Indication: NEUROMUSCULAR BLOCKADE
     Dosage: RIGHT SCALENE MUSCLE BLOCK: 37.5 MG BRACHIAL PLEXUS AXILLARY BLOCK: 37.5 MG
     Route: 053

REACTIONS (4)
  - Convulsion [Recovered/Resolved]
  - Cardiac arrest [Recovered/Resolved]
  - Toxicity to various agents [Recovered/Resolved]
  - Feeling abnormal [Recovered/Resolved]
